FAERS Safety Report 9860157 (Version 2)
Quarter: 2014Q2

REPORT INFORMATION
  Report Type: Spontaneous
  Country: IT (occurrence: IT)
  Receive Date: 20140201
  Receipt Date: 20140423
  Transmission Date: 20141212
  Serious: Yes (Other)
  Sender: FDA-Public Use
  Company Number: IT-ACCORD-021632

PATIENT
  Age: 45 Year
  Sex: Female

DRUGS (5)
  1. PACLITAXEL/PACLITAXEL LIPOSOME [Suspect]
     Indication: CHEMOTHERAPY
     Route: 042
     Dates: start: 20140108, end: 20140108
  2. RANITIDINE [Concomitant]
  3. PLASIL [Concomitant]
  4. TRIMETON [Concomitant]
  5. SOLDESAM [Concomitant]

REACTIONS (2)
  - Chest discomfort [Recovered/Resolved]
  - Laryngeal oedema [Recovered/Resolved]
